FAERS Safety Report 16160498 (Version 1)
Quarter: 2019Q2

REPORT INFORMATION
  Report Type: Spontaneous
  Country: FR (occurrence: FR)
  Receive Date: 20190405
  Receipt Date: 20190405
  Transmission Date: 20190711
  Serious: Yes (Other)
  Sender: FDA-Public Use
  Company Number: FR-PROVELL PHARMACEUTICALS-2065338

PATIENT
  Age: 28 Year
  Sex: Female

DRUGS (3)
  1. EUTHYROX [Suspect]
     Active Substance: LEVOTHYROXINE SODIUM
     Indication: POST PROCEDURAL HYPOTHYROIDISM
     Dates: start: 201704
  2. EUTHYROX [Suspect]
     Active Substance: LEVOTHYROXINE SODIUM
     Dates: start: 201801
  3. EUTHYROX [Suspect]
     Active Substance: LEVOTHYROXINE SODIUM
     Dates: start: 201708

REACTIONS (22)
  - Alopecia [Recovering/Resolving]
  - Dizziness [Recovering/Resolving]
  - Headache [Recovering/Resolving]
  - Fatigue [Recovering/Resolving]
  - Somnolence [Recovering/Resolving]
  - Stress [Recovering/Resolving]
  - Tension [Recovering/Resolving]
  - Red cell distribution width decreased [Recovering/Resolving]
  - Emotional disorder [Recovering/Resolving]
  - Miliaria [Recovering/Resolving]
  - Abortion spontaneous [Recovered/Resolved]
  - Pain [Recovering/Resolving]
  - Oral herpes [Recovering/Resolving]
  - Social avoidant behaviour [Recovering/Resolving]
  - Memory impairment [Recovering/Resolving]
  - Maternal exposure during pregnancy [Recovered/Resolved]
  - Major depression [Recovering/Resolving]
  - Onychoclasis [Recovering/Resolving]
  - Mood swings [Recovering/Resolving]
  - Aphthous ulcer [Recovering/Resolving]
  - Irritability [Recovering/Resolving]
  - Blood thyroid stimulating hormone increased [Recovering/Resolving]

NARRATIVE: CASE EVENT DATE: 2017
